FAERS Safety Report 11043579 (Version 2)
Quarter: 2015Q2

REPORT INFORMATION
  Report Type: Spontaneous
  Country: IT (occurrence: IT)
  Receive Date: 20150417
  Receipt Date: 20150506
  Transmission Date: 20150821
  Serious: Yes (Other)
  Sender: FDA-Public Use
  Company Number: IT-SUN PHARMACEUTICAL INDUSTRIES LTD-2015RR-95633

PATIENT
  Age: 43 Year
  Sex: Female

DRUGS (3)
  1. DELORAZEPAM [Suspect]
     Active Substance: DELORAZEPAM
     Indication: PRODUCT USED FOR UNKNOWN INDICATION
     Dosage: 5 MG TOTAL
     Route: 048
     Dates: start: 20150305, end: 20150305
  2. TRIAZOLAM. [Suspect]
     Active Substance: TRIAZOLAM
     Indication: DYSSOMNIA
     Dosage: 20 DOSAGE UNITS TOTAL
     Route: 048
     Dates: start: 20150305, end: 20150305
  3. ALPRAZOLAM. [Suspect]
     Active Substance: ALPRAZOLAM
     Indication: DYSSOMNIA
     Dosage: 20 ML TOTAL
     Route: 048
     Dates: start: 20150305, end: 20150305

REACTIONS (1)
  - Drug abuse [Recovered/Resolved]

NARRATIVE: CASE EVENT DATE: 20150305
